FAERS Safety Report 18400325 (Version 2)
Quarter: 2021Q4

REPORT INFORMATION
  Report Type: Spontaneous
  Country: US (occurrence: US)
  Receive Date: 20201019
  Receipt Date: 20211103
  Transmission Date: 20220303
  Serious: Yes (Other)
  Sender: FDA-Public Use
  Company Number: US-MMM-KIVBOCDE

PATIENT
  Age: 57 Year
  Sex: Female
  Weight: 63.492 kg

DRUGS (2)
  1. VRAYLAR [Suspect]
     Active Substance: CARIPRAZINE
     Indication: Depression
     Dosage: 1.5 MG, QD
     Dates: start: 201908, end: 201912
  2. VRAYLAR [Suspect]
     Active Substance: CARIPRAZINE
     Dosage: 1.5 MG, QD
     Dates: start: 2019

REACTIONS (3)
  - Tardive dyskinesia [Recovered/Resolved]
  - Obsessive-compulsive disorder [Unknown]
  - Off label use [Unknown]

NARRATIVE: CASE EVENT DATE: 20190710
